FAERS Safety Report 4343462-0 (Version None)
Quarter: 2004Q2

REPORT INFORMATION
  Report Type: 
  Country: None (occurrence: None)
  Receive Date: 20040412
  Receipt Date: 20040329
  Transmission Date: 20050107
  Serious: Yes (Death)
  Sender: FDA-Public Use
  Company Number: JP-JNJFOC-20040303845

PATIENT
  Age: 79 Year
  Sex: Male

DRUGS (3)
  1. DURAGESIC [Suspect]
     Indication: CANCER PAIN
     Dosage: 2.5 MG, 1 IN 72 HOUR, TRANSDERMAL
     Route: 062
     Dates: start: 20030429, end: 20030601
  2. DICLOFENAC SODIUM [Concomitant]
  3. MORPHINE [Concomitant]

REACTIONS (6)
  - ATAXIA [None]
  - CACHEXIA [None]
  - ENCEPHALOPATHY [None]
  - HEADACHE [None]
  - METASTASES TO CENTRAL NERVOUS SYSTEM [None]
  - SOMNOLENCE [None]
